FAERS Safety Report 6876448-2 (Version None)
Quarter: 2010Q3

REPORT INFORMATION
  Report Type: 
  Country: None (occurrence: None)
  Receive Date: 20100727
  Receipt Date: 20100711
  Transmission Date: 20110219
  Serious: Yes (Other)
  Sender: FDA-Public Use
  Company Number: PHHY2010US41069

PATIENT
  Sex: Female

DRUGS (2)
  1. RECLAST [Suspect]
  2. CALCIUM [Concomitant]

REACTIONS (4)
  - BEDRIDDEN [None]
  - FEELING COLD [None]
  - GASTRIC BYPASS [None]
  - INFECTION [None]
